FAERS Safety Report 4763167-1 (Version None)
Quarter: 2005Q3

REPORT INFORMATION
  Report Type: 
  Country: None (occurrence: None)
  Receive Date: 20050902
  Receipt Date: 20050812
  Transmission Date: 20060218
  Serious: Yes (Other)
  Sender: FDA-Public Use
  Company Number: 12042

PATIENT
  Sex: Male

DRUGS (2)
  1. FLUOROURACIL [Suspect]
     Dates: end: 20050301
  2. LEUCOVORIN CALCIUM [Suspect]
     Dates: end: 20050301

REACTIONS (2)
  - EYE INFLAMMATION [None]
  - LACRIMATION INCREASED [None]
